FAERS Safety Report 25923505 (Version 2)
Quarter: 2025Q4

REPORT INFORMATION
  Report Type: Spontaneous
  Country: US (occurrence: US)
  Receive Date: 20251015
  Receipt Date: 20251112
  Transmission Date: 20260117
  Serious: No
  Sender: TOLMAR
  Company Number: US-Tolmar-TLM-2025-07236

PATIENT

DRUGS (2)
  1. ELIGARD [Suspect]
     Active Substance: LEUPROLIDE ACETATE
     Indication: Product used for unknown indication
     Dosage: EXPIRATION DATES: JAN-2027; DEC-2026; 31-DEC-2026?SN: 7677721210507?GTIN: 00362935227106?DOSE NOT AD
  2. DEVICE [Suspect]
     Active Substance: DEVICE
     Indication: Product used for unknown indication
     Dosage: EXPIRATION DATES: JAN-2027; DEC-2026; 31-DEC-2026?SN: 7677721210507?GTIN: 00362935227106

REACTIONS (2)
  - Intercepted product preparation error [Unknown]
  - Device mechanical issue [Unknown]
